FAERS Safety Report 17447863 (Version 1)
Quarter: 2020Q1

REPORT INFORMATION
  Report Type: Spontaneous
  Country: US (occurrence: US)
  Receive Date: 20200221
  Receipt Date: 20200221
  Transmission Date: 20200409
  Serious: Yes (Hospitalization)
  Sender: FDA-Public Use
  Company Number: US-ROCHE-2555014

PATIENT
  Age: 70 Year
  Sex: Male

DRUGS (9)
  1. SULFASALAZINE. [Concomitant]
     Active Substance: SULFASALAZINE
  2. FLUTICASONE. [Concomitant]
     Active Substance: FLUTICASONE
  3. LOVASTATIN. [Concomitant]
     Active Substance: LOVASTATIN
  4. CARVEDILOL. [Concomitant]
     Active Substance: CARVEDILOL
     Route: 065
  5. FOLIC ACID. [Concomitant]
     Active Substance: FOLIC ACID
  6. ESBRIET [Suspect]
     Active Substance: PIRFENIDONE
     Indication: IDIOPATHIC PULMONARY FIBROSIS
     Route: 048
     Dates: start: 20151012
  7. OMEPRAZOLE. [Concomitant]
     Active Substance: OMEPRAZOLE
  8. ELIQUIS [Concomitant]
     Active Substance: APIXABAN
  9. METOPROLOL. [Concomitant]
     Active Substance: METOPROLOL

REACTIONS (2)
  - Pneumonia [Unknown]
  - Oxygen saturation decreased [Unknown]

NARRATIVE: CASE EVENT DATE: 20200215
